FAERS Safety Report 7712505-6 (Version None)
Quarter: 2011Q3

REPORT INFORMATION
  Report Type: 
  Country: None (occurrence: None)
  Receive Date: 20110826
  Receipt Date: 20110816
  Transmission Date: 20111222
  Serious: Yes (Hospitalization, Disabling, Other)
  Sender: FDA-Public Use
  Company Number: US-ELI_LILLY_AND_COMPANY-US201108002319

PATIENT
  Sex: Female

DRUGS (5)
  1. ZYPREXA [Suspect]
     Dosage: 20 MG, BID
     Dates: start: 20031201, end: 20100601
  2. ZYPREXA [Suspect]
     Indication: BIPOLAR DISORDER
     Dosage: 5 MG, QD
     Dates: start: 20031208, end: 20031201
  3. TRAZODONE HYDROCHLORIDE [Concomitant]
  4. ZYPREXA [Suspect]
     Dosage: UNK, UNKNOWN
     Route: 065
  5. ZYPREXA [Suspect]
     Dosage: 5 MG, QD
     Route: 065
     Dates: start: 20110622, end: 20110701

REACTIONS (14)
  - THROMBOSIS [None]
  - DEMENTIA [None]
  - MEMORY IMPAIRMENT [None]
  - HALLUCINATION [None]
  - ROAD TRAFFIC ACCIDENT [None]
  - CONVULSION [None]
  - LOWER LIMB FRACTURE [None]
  - SUICIDAL IDEATION [None]
  - ABNORMAL BEHAVIOUR [None]
  - OVERDOSE [None]
  - DISORIENTATION [None]
  - CONFUSIONAL STATE [None]
  - AMNESIA [None]
  - VISUAL ACUITY REDUCED [None]
